FAERS Safety Report 17388949 (Version 1)
Quarter: 2020Q1

REPORT INFORMATION
  Report Type: Report from Study
  Country: AR (occurrence: AR)
  Receive Date: 20200206
  Receipt Date: 20200206
  Transmission Date: 20200409
  Serious: Yes (Other)
  Sender: FDA-Public Use
  Company Number: AR-BRISTOL-MYERS SQUIBB COMPANY-BMS-2020-000929

PATIENT
  Age: 70 Year
  Sex: Female

DRUGS (3)
  1. APIXABAN [Suspect]
     Active Substance: APIXABAN
     Indication: CEREBROVASCULAR ACCIDENT PROPHYLAXIS
     Dosage: 5 MILLIGRAM, BID
     Route: 065
     Dates: start: 20190401
  2. LOSACARD [Concomitant]
     Indication: PRODUCT USED FOR UNKNOWN INDICATION
     Dosage: 1 TABLET DAILY
     Route: 065
  3. ALPLACIN DIGEST [Concomitant]
     Indication: PRODUCT USED FOR UNKNOWN INDICATION
     Dosage: 1 DAILY TABLET
     Route: 065

REACTIONS (4)
  - Cellulitis [Recovered/Resolved]
  - Erythema [Recovered/Resolved]
  - Limb injury [Recovered/Resolved]
  - Fall [Recovered/Resolved]

NARRATIVE: CASE EVENT DATE: 20191221
